FAERS Safety Report 22346816 (Version 2)
Quarter: 2023Q2

REPORT INFORMATION
  Report Type: Spontaneous
  Country: GB (occurrence: GB)
  Receive Date: 20230520
  Receipt Date: 20230531
  Transmission Date: 20230721
  Serious: Yes (Disabling, Other)
  Sender: FDA-Public Use
  Company Number: GB-SOLVAY-00302000560

PATIENT
  Age: 74 Year
  Sex: Male

DRUGS (11)
  1. AMLODIPINE [Suspect]
     Active Substance: AMLODIPINE BESYLATE
     Indication: Ill-defined disorder
     Dosage: 10 MG
     Route: 065
  2. ATORVASTATIN [Suspect]
     Active Substance: ATORVASTATIN
     Indication: Ill-defined disorder
     Dosage: 10 MG
     Route: 065
  3. BENDROFLUMETHIAZIDE [Suspect]
     Active Substance: BENDROFLUMETHIAZIDE
     Indication: Ill-defined disorder
     Dosage: 2.5 UNK
     Route: 065
  4. DIGOXIN [Suspect]
     Active Substance: DIGOXIN
     Indication: Ill-defined disorder
     Dosage: 125 UG, QD
     Route: 065
  5. LACTULOSE [Suspect]
     Active Substance: LACTULOSE
     Indication: Ill-defined disorder
     Dosage: 3.35 MG/5ML, BID
     Route: 065
  6. ACETAMINOPHEN [Suspect]
     Active Substance: ACETAMINOPHEN
     Indication: Ill-defined disorder
     Dosage: 1000 MG
     Route: 065
  7. THEOPHYLLINE [Suspect]
     Active Substance: THEOPHYLLINE
     Indication: Chronic obstructive pulmonary disease
     Dosage: 500 MG
     Route: 065
     Dates: start: 20011126, end: 20011211
  8. TRANDOLAPRIL [Suspect]
     Active Substance: TRANDOLAPRIL
     Indication: Ill-defined disorder
     Dosage: 2 MG
     Route: 065
  9. WARFARIN [Suspect]
     Active Substance: WARFARIN
     Indication: Ill-defined disorder
     Dosage: 1 TO 3, BID
     Route: 065
  10. ISOSORBIDE DINITRATE [Suspect]
     Active Substance: ISOSORBIDE DINITRATE
     Indication: Ill-defined disorder
     Dosage: 60 MG
     Route: 065
  11. ALBUTEROL SULFATE [Suspect]
     Active Substance: ALBUTEROL SULFATE
     Indication: Ill-defined disorder
     Dosage: 100 UG
     Route: 065

REACTIONS (1)
  - Depression suicidal [Recovered/Resolved]

NARRATIVE: CASE EVENT DATE: 20011128
